FAERS Safety Report 17793977 (Version 2)
Quarter: 2020Q2

REPORT INFORMATION
  Report Type: Spontaneous
  Country: FI (occurrence: FI)
  Receive Date: 20200515
  Receipt Date: 20200519
  Transmission Date: 20200714
  Serious: Yes (Hospitalization, Other)
  Sender: FDA-Public Use
  Company Number: NVSC2020FI131648

PATIENT
  Age: 64 Year
  Sex: Male

DRUGS (6)
  1. ONDANSETRON [Suspect]
     Active Substance: ONDANSETRON
     Indication: VOMITING
     Dosage: 12 MG, QD
     Route: 042
  2. RINGERS SOLUTION [Concomitant]
     Active Substance: CALCIUM CHLORIDE\POTASSIUM CHLORIDE\SODIUM CHLORIDE
     Indication: PRODUCT USED FOR UNKNOWN INDICATION
     Dosage: UNK
     Route: 042
  3. ZUCLOPENTHIXOL [Suspect]
     Active Substance: ZUCLOPENTHIXOL
     Indication: SCHIZOPHRENIA
     Dosage: 150 MG
     Route: 030
  4. CEFUROXIME. [Concomitant]
     Active Substance: CEFUROXIME
     Indication: PYELONEPHRITIS
  5. ONDANSETRON [Suspect]
     Active Substance: ONDANSETRON
     Indication: NAUSEA
  6. CEFUROXIME. [Concomitant]
     Active Substance: CEFUROXIME
     Indication: ANTIBIOTIC THERAPY
     Dosage: 2 G, QD
     Route: 042

REACTIONS (9)
  - Electrocardiogram QT prolonged [Unknown]
  - Torsade de pointes [Unknown]
  - Metabolic alkalosis [Unknown]
  - Long QT syndrome [Unknown]
  - Pulse absent [Unknown]
  - Dehydration [Unknown]
  - Cardiac arrest [Unknown]
  - Arrhythmia [Unknown]
  - Hypokalaemia [Unknown]
